FAERS Safety Report 14293180 (Version 2)
Quarter: 2017Q4

REPORT INFORMATION
  Report Type: Spontaneous
  Country: JP (occurrence: JP)
  Receive Date: 20171215
  Receipt Date: 20171222
  Transmission Date: 20180321
  Serious: Yes (Other)
  Sender: FDA-Public Use
  Company Number: JP-SPECTRUM PHARMACEUTICALS, INC.-17-F-JP-00406

PATIENT
  Sex: Male

DRUGS (4)
  1. HYDROXOCOBALAMIN ACETATE. [Concomitant]
     Active Substance: HYDROXOCOBALAMIN ACETATE
     Indication: PROPHYLAXIS
     Dosage: 1000 MG, UNK
     Route: 030
  2. FOLOTYN [Suspect]
     Active Substance: PRALATREXATE
     Indication: PRODUCT USED FOR UNKNOWN INDICATION
     Dosage: 30 MG/M2, SINGLE
     Route: 042
     Dates: start: 20171116, end: 20171116
  3. PANVITAN                           /00466101/ [Concomitant]
     Indication: PROPHYLAXIS
     Dosage: UNK G, UNK
     Route: 048
  4. FOLOTYN [Suspect]
     Active Substance: PRALATREXATE
     Dosage: 30 MG/M2, SINGLE
     Route: 042
     Dates: start: 20171122, end: 20171122

REACTIONS (3)
  - Disease progression [Not Recovered/Not Resolved]
  - Stomatitis [Recovered/Resolved]
  - Platelet count decreased [Recovered/Resolved]

NARRATIVE: CASE EVENT DATE: 201711
